FAERS Safety Report 5951029-3 (Version None)
Quarter: 2008Q4

REPORT INFORMATION
  Report Type: 
  Country: None (occurrence: None)
  Receive Date: 20081110
  Receipt Date: 20060915
  Transmission Date: 20090506
  Serious: Yes (Life-Threatening)
  Sender: FDA-Public Use
  Company Number: 2006S1005433

PATIENT
  Age: 68 Year
  Sex: Female
  Weight: 97.5234 kg

DRUGS (5)
  1. PHOSPHOSODA FLAVOR NOT SPECIFIED [Suspect]
     Indication: COLONOSCOPY
     Dosage: 45 ML; X1; PO
     Route: 048
  2. SYNTHROID [Concomitant]
  3. GLYBURIDE [Concomitant]
  4. TRIAMTERENE [Concomitant]
  5. HYDROCHLOROTHIAZIDE [Concomitant]

REACTIONS (12)
  - ANXIETY [None]
  - BLOOD PARATHYROID HORMONE INCREASED [None]
  - ELECTROCARDIOGRAM QT PROLONGED [None]
  - HYPERPHOSPHATAEMIA [None]
  - HYPOAESTHESIA [None]
  - HYPOAESTHESIA FACIAL [None]
  - HYPOCALCAEMIA [None]
  - HYPOMAGNESAEMIA [None]
  - JOINT RANGE OF MOTION DECREASED [None]
  - SYNCOPE [None]
  - TETANY [None]
  - VITAMIN D DECREASED [None]
